FAERS Safety Report 5766128-9 (Version None)
Quarter: 2008Q2

REPORT INFORMATION
  Report Type: 
  Country: None (occurrence: None)
  Receive Date: 20080611
  Receipt Date: 20080530
  Transmission Date: 20081010
  Serious: Yes (Hospitalization)
  Sender: FDA-Public Use
  Company Number: US-PFIZER INC-2008046891

PATIENT
  Sex: Female
  Weight: 67.1 kg

DRUGS (4)
  1. CHANTIX [Suspect]
     Indication: SMOKING CESSATION THERAPY
     Dates: start: 20080301, end: 20080101
  2. PAXIL [Concomitant]
  3. IBUROFEN [Concomitant]
  4. CALCIUM [Concomitant]

REACTIONS (7)
  - ABNORMAL DREAMS [None]
  - CONSTIPATION [None]
  - DEPRESSION [None]
  - DRY MOUTH [None]
  - ENERGY INCREASED [None]
  - FLATULENCE [None]
  - NAUSEA [None]
